FAERS Safety Report 23607934 (Version 2)
Quarter: 2024Q2

REPORT INFORMATION
  Report Type: Report from Study
  Country: IT (occurrence: IT)
  Receive Date: 20240307
  Receipt Date: 20240408
  Transmission Date: 20240716
  Serious: Yes (Other)
  Sender: FDA-Public Use
  Company Number: IT-KYOWAKIRIN-2024KK002880

PATIENT
  Age: 88 Year
  Sex: Female
  Weight: 48 kg

DRUGS (10)
  1. ACYCLOVIR [Suspect]
     Active Substance: ACYCLOVIR
     Indication: Cutaneous T-cell lymphoma
     Dosage: 800 MILLIGRAM, QD (400 MG, BID, (CP))
     Route: 065
     Dates: start: 20240129
  2. MOGAMULIZUMAB [Suspect]
     Active Substance: MOGAMULIZUMAB
     Indication: Cutaneous T-cell lymphoma
     Dosage: 48 MILLIGRAM, QW
     Route: 042
     Dates: start: 20240129
  3. MOGAMULIZUMAB [Suspect]
     Active Substance: MOGAMULIZUMAB
     Dosage: 48 MILLIGRAM, QW
     Route: 065
     Dates: start: 20240226
  4. BACTRIM [Suspect]
     Active Substance: SULFAMETHOXAZOLE\TRIMETHOPRIM
     Indication: Cutaneous T-cell lymphoma
     Dosage: Q3W ((160+800 MG) CP, 3X/WEEK)
     Route: 065
     Dates: start: 20240129
  5. RAMIPRIL [Concomitant]
     Active Substance: RAMIPRIL
     Indication: Hypertension
     Dosage: 10 MILLIGRAM, QD
     Route: 048
     Dates: start: 20160201
  6. TOUJEO [Concomitant]
     Active Substance: INSULIN GLARGINE
     Indication: Diabetes mellitus
     Dosage: 300 INTERNATIONAL UNIT PER MILLILITRE, QD
     Route: 048
     Dates: start: 20140101
  7. PLAQUENIL [Concomitant]
     Active Substance: HYDROXYCHLOROQUINE SULFATE
     Indication: Osteoporosis
     Dosage: 200 MILLIGRAM, QD
     Route: 048
     Dates: start: 20180110
  8. PREGABALIN [Concomitant]
     Active Substance: PREGABALIN
     Indication: Neuropathy peripheral
     Dosage: 75 MILLIGRAM, QD
     Route: 048
     Dates: start: 20230821
  9. LEVOTHYROXINE SODIUM [Concomitant]
     Active Substance: LEVOTHYROXINE SODIUM
     Indication: Thyroiditis
     Dosage: 100 MICROGRAM, QD
     Route: 048
     Dates: start: 20200101
  10. CARDURA [Concomitant]
     Active Substance: DOXAZOSIN MESYLATE
     Indication: Hypertension
     Dosage: 2 MILLIGRAM, BID
     Route: 048
     Dates: start: 20160201

REACTIONS (2)
  - Erythema [Recovered/Resolved]
  - Pruritus [Recovered/Resolved]

NARRATIVE: CASE EVENT DATE: 20240216
